FAERS Safety Report 19921108 (Version 1)
Quarter: 2021Q4

REPORT INFORMATION
  Report Type: Spontaneous
  Country: CN (occurrence: CN)
  Receive Date: 20211005
  Receipt Date: 20211005
  Transmission Date: 20220303
  Serious: Yes (Other)
  Sender: FDA-Public Use
  Company Number: CN-BAXTER-2021BAX027705

PATIENT
  Age: 49 Year
  Sex: Female
  Weight: 60 kg

DRUGS (7)
  1. CYCLOPHOSPHAMIDE [Suspect]
     Active Substance: CYCLOPHOSPHAMIDE
     Indication: Mantle cell lymphoma
     Dosage: CYCLOPHOSPHAMIDE 1 G + NORMAL SALINE 100 ML
     Route: 041
     Dates: start: 20190423, end: 20190423
  2. SODIUM CHLORIDE [Suspect]
     Active Substance: SODIUM CHLORIDE
     Indication: Medication dilution
     Dosage: CYCLOPHOSPHAMIDE 1 G + NORMAL SALINE 100 ML
     Route: 041
     Dates: start: 20190423, end: 20190423
  3. SODIUM CHLORIDE [Suspect]
     Active Substance: SODIUM CHLORIDE
     Dosage: EPIRUBICIN 70 MG + NORMAL SALINE 100 ML
     Route: 041
     Dates: start: 20190423, end: 20190423
  4. SODIUM CHLORIDE [Suspect]
     Active Substance: SODIUM CHLORIDE
     Dosage: ETOPOSIDE 0.1 G + NORMAL SALINE 500 ML
     Route: 065
     Dates: start: 20190423, end: 20190427
  5. EPIRUBICIN HYDROCHLORIDE [Suspect]
     Active Substance: EPIRUBICIN HYDROCHLORIDE
     Indication: Mantle cell lymphoma
     Dosage: EPIRUBICIN 70 MG + NORMAL SALINE 100 ML, D1
     Route: 041
     Dates: start: 20190423, end: 20190423
  6. ETOPOSIDE [Suspect]
     Active Substance: ETOPOSIDE
     Indication: Mantle cell lymphoma
     Dosage: ETOPOSIDE 0.1 G + NORMAL SALINE 500 ML D1-5
     Route: 065
     Dates: start: 20190423, end: 20190427
  7. PREDNISONE [Suspect]
     Active Substance: PREDNISONE
     Indication: Mantle cell lymphoma
     Dosage: D1-5
     Route: 048
     Dates: start: 20190423, end: 20190427

REACTIONS (2)
  - Gastrointestinal disorder [Recovering/Resolving]
  - Decreased appetite [Recovering/Resolving]

NARRATIVE: CASE EVENT DATE: 20190423
